FAERS Safety Report 16498404 (Version 4)
Quarter: 2019Q3

REPORT INFORMATION
  Report Type: Spontaneous
  Country: JP (occurrence: JP)
  Receive Date: 20190629
  Receipt Date: 20190912
  Transmission Date: 20191004
  Serious: Yes (Hospitalization, Other)
  Sender: FDA-Public Use
  Company Number: JP-AMGEN-JPNSP2019102202

PATIENT
  Age: 89 Year
  Sex: Female
  Weight: 32 kg

DRUGS (7)
  1. BRONUCK [Concomitant]
     Active Substance: BROMFENAC SODIUM
     Dosage: UNK UNK, TID
  2. EVENITY [Suspect]
     Active Substance: ROMOSOZUMAB-AQQG
     Indication: OSTEOPOROSIS
     Dosage: 210 MILLIGRAM
     Route: 058
     Dates: start: 20190406
  3. MAGMITT [Concomitant]
     Active Substance: MAGNESIUM OXIDE
     Indication: CONSTIPATION
     Dosage: 990 MILLIGRAM, TID
  4. PREDONINE [Suspect]
     Active Substance: PREDNISOLONE
     Indication: THROMBOCYTOPENIC PURPURA
     Dosage: 1 MILLIGRAM, QD
     Route: 065
  5. LANSOPRAZOLE. [Concomitant]
     Active Substance: LANSOPRAZOLE
     Indication: GASTRITIS
     Dosage: 15 MILLIGRAM, QD (OD TABLET)
  6. REVOLADE [Concomitant]
     Active Substance: ELTROMBOPAG
     Indication: THROMBOCYTOPENIC PURPURA
     Dosage: 12.5 MILLIGRAM, QD
  7. DIQUAS [Concomitant]
     Active Substance: DIQUAFOSOL TETRASODIUM
     Indication: DRY EYE
     Dosage: UNK UNK, QID

REACTIONS (2)
  - Pubis fracture [Recovering/Resolving]
  - Fall [Recovering/Resolving]

NARRATIVE: CASE EVENT DATE: 20190530
